FAERS Safety Report 8895390 (Version 1)
Quarter: 2012Q4

REPORT INFORMATION
  Report Type: 
  Country: US (occurrence: US)
  Receive Date: 20121108
  Receipt Date: 20121108
  Transmission Date: 20130627
  Serious: No
  Sender: FDA-Public Use
  Company Number: US-ASTRAZENECA-2012SE82436

PATIENT
  Age: 38 Year
  Sex: Male

DRUGS (1)
  1. SEROQUEL [Suspect]
     Route: 048

REACTIONS (6)
  - Thinking abnormal [Unknown]
  - Incoherent [Unknown]
  - Adverse event [Unknown]
  - Lethargy [Unknown]
  - Restlessness [Unknown]
  - Drug dose omission [Unknown]
